FAERS Safety Report 7468891-8 (Version None)
Quarter: 2011Q2

REPORT INFORMATION
  Report Type: 
  Country: None (occurrence: None)
  Receive Date: 20110510
  Receipt Date: 20110503
  Transmission Date: 20111010
  Serious: No
  Sender: FDA-Public Use
  Company Number: US-BIOGENIDEC-2011BI016866

PATIENT
  Age: 51 Year
  Sex: Female

DRUGS (3)
  1. GABAPENTIN [Concomitant]
     Indication: NEURALGIA
  2. TYSABRI [Suspect]
     Indication: MULTIPLE SCLEROSIS
     Route: 042
     Dates: start: 20110401
  3. OTHER ORAL PAIN MEDS [Concomitant]
     Indication: NEURALGIA

REACTIONS (3)
  - URINARY TRACT INFECTION [None]
  - PAIN IN EXTREMITY [None]
  - ORAL HERPES [None]
